FAERS Safety Report 5205598-1 (Version None)
Quarter: 2006Q4

REPORT INFORMATION
  Report Type: 
  Country: None (occurrence: None)
  Receive Date: 20061027
  Receipt Date: 20060824
  Transmission Date: 20070319
  Serious: No
  Sender: FDA-Public Use
  Company Number: POMP-10816

PATIENT
  Age: 5 Year
  Sex: Male

DRUGS (4)
  1. MYOZYME [Suspect]
     Indication: GLYCOGEN STORAGE DISEASE TYPE II
     Dosage: 20 MG/KG Q2WKS; IV
     Route: 042
     Dates: start: 20060823, end: 20060823
  2. MYOZYME [Suspect]
     Indication: GLYCOGEN STORAGE DISEASE TYPE II
     Dosage: 10 MG/KG QWK; IV
     Route: 042
     Dates: start: 20060620, end: 20060801
  3. ALPHA-GLUCOSIDASE (HUMAN, RECOMBINANT, CHO CELLS, GENZYME) [Suspect]
     Indication: GLYCOGEN STORAGE DISEASE TYPE II
     Dosage: 10 MG/KG QWK; IV
     Route: 042
     Dates: start: 20030417, end: 20060601
  4. R-HUMAN ALPHA GLUCOSIDASE [Suspect]
     Indication: GLYCOGEN STORAGE DISEASE TYPE II
     Dosage: 10 MG/KG QWK; IV
     Route: 042
     Dates: start: 20010713, end: 20030413

REACTIONS (5)
  - AGITATION [None]
  - FACE OEDEMA [None]
  - HEART RATE INCREASED [None]
  - PRURITUS [None]
  - RASH MACULAR [None]
